FAERS Safety Report 7546783-3 (Version None)
Quarter: 2011Q2

REPORT INFORMATION
  Report Type: 
  Country: None (occurrence: None)
  Receive Date: 20110614
  Receipt Date: 20110607
  Transmission Date: 20111010
  Serious: Yes (Other)
  Sender: FDA-Public Use
  Company Number: US-ROCHE-749353

PATIENT
  Sex: Female
  Weight: 63.5 kg

DRUGS (2)
  1. SULFASALAZINE [Concomitant]
  2. ACCUTANE [Suspect]
     Indication: ACNE
     Route: 065
     Dates: start: 19850101, end: 19900101

REACTIONS (11)
  - INTESTINAL HAEMORRHAGE [None]
  - OSTEOPOROSIS [None]
  - COLITIS ULCERATIVE [None]
  - HAEMORRHOIDS [None]
  - OSTEOARTHRITIS [None]
  - CHOLANGITIS SCLEROSING [None]
  - IRRITABLE BOWEL SYNDROME [None]
  - GASTROINTESTINAL INJURY [None]
  - OSTEOPENIA [None]
  - CROHN'S DISEASE [None]
  - INTESTINAL OBSTRUCTION [None]
